FAERS Safety Report 10432164 (Version 1)
Quarter: 2014Q3

REPORT INFORMATION
  Report Type: Spontaneous
  Country: US (occurrence: None)
  Receive Date: 20140903
  Receipt Date: 20140903
  Transmission Date: 20150326
  Serious: Yes (Hospitalization)
  Sender: FDA-Public Use
  Company Number: None

PATIENT
  Age: 69 Year
  Sex: Male

DRUGS (1)
  1. NAPROXEN. [Suspect]
     Active Substance: NAPROXEN
     Indication: PAIN
     Route: 048
     Dates: start: 20100902, end: 20140811

REACTIONS (4)
  - Nephropathy toxic [None]
  - Eosinophilia [None]
  - Oedema [None]
  - Proteinuria [None]

NARRATIVE: CASE EVENT DATE: 20140811
